FAERS Safety Report 10612816 (Version 1)
Quarter: 2014Q4

REPORT INFORMATION
  Report Type: Report from Study
  Country: US (occurrence: US)
  Receive Date: 20141127
  Receipt Date: 20141127
  Transmission Date: 20150529
  Serious: No
  Sender: FDA-Public Use
  Company Number: US-009507513-1411USA009306

PATIENT
  Age: 44 Year
  Sex: Female
  Weight: 86.62 kg

DRUGS (1)
  1. IMPLANON [Suspect]
     Active Substance: ETONOGESTREL
     Dosage: UNK
     Route: 059
     Dates: start: 20111103, end: 20141113

REACTIONS (2)
  - Incorrect drug administration duration [Unknown]
  - Medical device removal [Unknown]

NARRATIVE: CASE EVENT DATE: 20141104
